FAERS Safety Report 8495066-6 (Version None)
Quarter: 2012Q3

REPORT INFORMATION
  Report Type: 
  Country: None (occurrence: None)
  Receive Date: 20120709
  Receipt Date: 20120704
  Transmission Date: 20120928
  Serious: Yes (Death)
  Sender: FDA-Public Use
  Company Number: CO-JNJFOC-20120702743

PATIENT
  Age: 50 Year
  Sex: Male

DRUGS (1)
  1. TOPIRAMATE [Suspect]
     Indication: EPILEPSY
     Route: 048
     Dates: start: 20100921, end: 20120525

REACTIONS (1)
  - DEATH [None]
